FAERS Safety Report 7376968-0 (Version None)
Quarter: 2011Q1

REPORT INFORMATION
  Report Type: 
  Country: None (occurrence: None)
  Receive Date: 20110328
  Receipt Date: 20110316
  Transmission Date: 20110831
  Serious: Yes (Hospitalization)
  Sender: FDA-Public Use
  Company Number: US-BIOGENIDEC-2010BI005215

PATIENT
  Sex: Female
  Weight: 79 kg

DRUGS (17)
  1. AVONEX [Suspect]
     Route: 030
     Dates: start: 20041201
  2. METOPROLOL [Concomitant]
     Indication: BLOOD CHOLESTEROL INCREASED
     Route: 048
  3. TRICOR [Concomitant]
     Route: 048
  4. VITAMINS (NOS) [Concomitant]
     Route: 048
  5. VITAMIN B [Concomitant]
     Route: 048
  6. AMLODIPINE [Concomitant]
     Route: 048
  7. IRON [Concomitant]
     Route: 048
  8. MAGNESIUM CHLORIDE [Concomitant]
     Route: 048
  9. AVONEX [Suspect]
     Route: 030
     Dates: end: 20040901
  10. BACLOFEN [Concomitant]
     Route: 048
  11. VYTORIN [Concomitant]
  12. HYDROCHLOROTHIAZIDE [Concomitant]
     Route: 048
  13. RAMIPRIL [Concomitant]
     Route: 048
  14. AVONEX [Suspect]
     Indication: MULTIPLE SCLEROSIS
     Route: 030
     Dates: start: 19960101
  15. CALCIUM [Concomitant]
     Route: 048
  16. GLIPIZIDE [Concomitant]
     Route: 048
  17. FLOEXETINE [Concomitant]
     Route: 048

REACTIONS (8)
  - BLOOD CHOLESTEROL INCREASED [None]
  - INFLUENZA LIKE ILLNESS [None]
  - FALL [None]
  - TYPE 2 DIABETES MELLITUS [None]
  - INGROWING NAIL [None]
  - KNEE ARTHROPLASTY [None]
  - DYSPNOEA [None]
  - CORONARY ARTERY OCCLUSION [None]
